FAERS Safety Report 5040231-3 (Version None)
Quarter: 2006Q2

REPORT INFORMATION
  Report Type: 
  Country: None (occurrence: None)
  Receive Date: 20060630
  Receipt Date: 20060619
  Transmission Date: 20061013
  Serious: Yes (Other)
  Sender: FDA-Public Use
  Company Number: JP-NOVOPROD-254330

PATIENT
  Age: 61 Year
  Sex: Male

DRUGS (2)
  1. PENFILL R CHU [Suspect]
     Indication: INSULIN-REQUIRING TYPE II DIABETES MELLITUS
     Route: 058
     Dates: start: 20000101, end: 20060526
  2. PENFILL 50R CHU [Suspect]
     Indication: INSULIN-REQUIRING TYPE II DIABETES MELLITUS
     Route: 058
     Dates: start: 20000101, end: 20060526

REACTIONS (2)
  - ANAEMIA [None]
  - INJECTION SITE RASH [None]
